FAERS Safety Report 18083052 (Version 2)
Quarter: 2020Q3

REPORT INFORMATION
  Report Type: Spontaneous
  Country: GB (occurrence: GB)
  Receive Date: 20200729
  Receipt Date: 20200911
  Transmission Date: 20201103
  Serious: Yes (Other)
  Sender: FDA-Public Use
  Company Number: GB-TEVA-2020-GB-1805812

PATIENT
  Age: 58 Year
  Sex: Female
  Weight: 81.64 kg

DRUGS (4)
  1. CETIRIZINE DIHYDROCHLORIDE [Concomitant]
     Active Substance: CETIRIZINE HYDROCHLORIDE
     Indication: RHINITIS PERENNIAL
     Dosage: 10MG
  2. GABAPENTIN. [Suspect]
     Active Substance: GABAPENTIN
     Indication: MULTIPLE SCLEROSIS
     Dosage: 600MG
     Route: 048
     Dates: start: 2010, end: 202006
  3. MULTIVITAMIN [Concomitant]
     Active Substance: VITAMINS
  4. HYOSCINE BUTYLBROMIDE [Concomitant]
     Active Substance: BUTYLSCOPOLAMINE BROMIDE
     Dosage: 20MG, FOR LEAKY GUT

REACTIONS (2)
  - Gingival disorder [Not Recovered/Not Resolved]
  - Tooth loss [Not Recovered/Not Resolved]

NARRATIVE: CASE EVENT DATE: 2010
